FAERS Safety Report 7615716-3 (Version None)
Quarter: 2011Q3

REPORT INFORMATION
  Report Type: 
  Country: None (occurrence: None)
  Receive Date: 20110711
  Receipt Date: 20110615
  Transmission Date: 20111222
  Serious: Yes (Hospitalization, Other)
  Sender: FDA-Public Use
  Company Number: AUR-APL-2011-02782

PATIENT
  Age: 46 Year
  Sex: Female

DRUGS (2)
  1. HYDROCHLOROTHIAZIDE [Suspect]
     Indication: HYPERTENSION
     Dosage: (25 MG),ORAL
     Route: 048
  2. ATENOLOL [Concomitant]

REACTIONS (6)
  - NON-CARDIOGENIC PULMONARY OEDEMA [None]
  - ACUTE LUNG INJURY [None]
  - LETHARGY [None]
  - VOMITING [None]
  - NAUSEA [None]
  - SEPTIC SHOCK [None]
